FAERS Safety Report 5639388-2 (Version None)
Quarter: 2008Q1

REPORT INFORMATION
  Report Type: 
  Country: None (occurrence: None)
  Receive Date: 20080226
  Receipt Date: 20080214
  Transmission Date: 20080703
  Serious: Yes (Other)
  Sender: FDA-Public Use
  Company Number: US-PFIZER INC-2007107207

PATIENT
  Age: 67 Year
  Sex: Female

DRUGS (4)
  1. LYRICA [Suspect]
  2. TRAMADOL HCL [Concomitant]
  3. KLONOPIN [Concomitant]
  4. ZOLOFT [Concomitant]

REACTIONS (5)
  - CONVULSION [None]
  - DRUG INTOLERANCE [None]
  - DYSKINESIA [None]
  - HYPERAESTHESIA [None]
  - INSOMNIA [None]
